FAERS Safety Report 22032576 (Version 9)
Quarter: 2024Q4

REPORT INFORMATION
  Report Type: Spontaneous
  Country: US (occurrence: US)
  Receive Date: 20230224
  Receipt Date: 20241025
  Transmission Date: 20250115
  Serious: No
  Sender: BRISTOL-MYERS SQUIBB COMPANY
  Company Number: US-BRISTOL-MYERS SQUIBB COMPANY-2023-026944

PATIENT
  Age: 79 Year
  Sex: Female

DRUGS (4)
  1. POMALYST [Suspect]
     Active Substance: POMALIDOMIDE
     Indication: Plasma cell myeloma
     Route: 048
  2. POMALYST [Suspect]
     Active Substance: POMALIDOMIDE
     Route: 048
  3. POMALYST [Suspect]
     Active Substance: POMALIDOMIDE
     Route: 048
  4. POMALYST [Suspect]
     Active Substance: POMALIDOMIDE
     Route: 048

REACTIONS (14)
  - Fatigue [Not Recovered/Not Resolved]
  - Balance disorder [Not Recovered/Not Resolved]
  - Fall [Not Recovered/Not Resolved]
  - Weight increased [Not Recovered/Not Resolved]
  - Respiratory syncytial virus infection [Not Recovered/Not Resolved]
  - Depression [Not Recovered/Not Resolved]
  - Illness [Unknown]
  - Product use issue [Unknown]
  - Accident [Unknown]
  - Product prescribing issue [Unknown]
  - Urinary tract infection [Recovering/Resolving]
  - Pain [Recovering/Resolving]
  - Back pain [Not Recovered/Not Resolved]
  - Urinary incontinence [Recovered/Resolved]
